FAERS Safety Report 7426947-X (Version None)
Quarter: 2011Q2

REPORT INFORMATION
  Report Type: 
  Country: None (occurrence: None)
  Receive Date: 20110420
  Receipt Date: 20110418
  Transmission Date: 20111010
  Serious: Yes (Other)
  Sender: FDA-Public Use
  Company Number: US-PFIZER INC-2011084441

PATIENT
  Sex: Female
  Weight: 61.224 kg

DRUGS (6)
  1. LOVASTATIN [Concomitant]
     Indication: BLOOD CHOLESTEROL ABNORMAL
     Dosage: 20 MG, 1X/DAY
     Route: 048
  2. OMEPRAZOLE [Concomitant]
     Indication: GASTROOESOPHAGEAL REFLUX DISEASE
  3. OMEPRAZOLE [Concomitant]
     Indication: DYSPEPSIA
     Dosage: 20 MG, 1X/DAY
     Route: 048
  4. VITAMINS [Concomitant]
     Dosage: UNK
     Route: 048
  5. LYRICA [Suspect]
     Indication: NEURALGIA
     Dosage: 75 MG, 2X/DAY
     Route: 048
     Dates: start: 20110301
  6. HYDROXYUREA [Concomitant]
     Dosage: 500MG DAILY FOR TWO DAYS SKIPPING ONE DAY
     Route: 048

REACTIONS (2)
  - COMPLEX REGIONAL PAIN SYNDROME [None]
  - OEDEMA PERIPHERAL [None]
